FAERS Safety Report 23233006 (Version 1)
Quarter: 2023Q4

REPORT INFORMATION
  Report Type: Spontaneous
  Country: AU (occurrence: None)
  Receive Date: 20231128
  Receipt Date: 20231128
  Transmission Date: 20240110
  Serious: Yes (Disabling, Other)
  Sender: FDA-Public Use
  Company Number: AU-ROCHE-3426569

PATIENT
  Age: 76 Year
  Sex: Female

DRUGS (2)
  1. VABYSMO [Suspect]
     Active Substance: FARICIMAB\FARICIMAB-SVOA
     Indication: Neovascular age-related macular degeneration
     Dosage: 6MG IN 0.05MLS?THERAPY START DATE: LEFT EYE: 1ST FEB 2023, RIGHT EYE: 15TH MARCH 2023?LAST DOSE IN B
     Route: 050
     Dates: start: 20230201
  2. VABYSMO [Suspect]
     Active Substance: FARICIMAB\FARICIMAB-SVOA
     Dosage: 6MG/0.05ML
     Route: 050

REACTIONS (5)
  - Uveitis [Unknown]
  - Papillitis [Unknown]
  - Eye pain [Unknown]
  - Visual acuity reduced [Unknown]
  - Headache [Unknown]

NARRATIVE: CASE EVENT DATE: 20230920
